FAERS Safety Report 5709244-X (Version None)
Quarter: 2008Q2

REPORT INFORMATION
  Report Type: 
  Country: None (occurrence: None)
  Receive Date: 20080418
  Receipt Date: 20080410
  Transmission Date: 20081010
  Serious: Yes (Other)
  Sender: FDA-Public Use
  Company Number: US-ASTRAZENECA-2008UW07448

PATIENT
  Age: 27 Year
  Sex: Female

DRUGS (4)
  1. SEROQUEL [Suspect]
     Route: 048
  2. HALDOL [Suspect]
  3. DEPAKOTE [Suspect]
  4. LAMICTAL [Concomitant]

REACTIONS (1)
  - BLOOD PROLACTIN INCREASED [None]
